FAERS Safety Report 6656262-3 (Version None)
Quarter: 2010Q1

REPORT INFORMATION
  Report Type: 
  Country: None (occurrence: None)
  Receive Date: 20100324
  Receipt Date: 20100319
  Transmission Date: 20100710
  Serious: Yes (Life-Threatening)
  Sender: FDA-Public Use
  Company Number: 2009SP039805

PATIENT
  Age: 62 Year
  Sex: Female
  Weight: 51 kg

DRUGS (18)
  1. ROCURONIUM BROMIDE [Suspect]
     Indication: NEUROMUSCULAR BLOCKING THERAPY
     Dosage: 50 MG;ONCE;IV, 10 MG;ONCE;IV, 10 MG;ONCE;IV, 10 MG;ONCE;IV, 10 MG;ONCE;IV, 10 MG;ONCE;IV, 10;MG;ONCE
     Route: 042
     Dates: start: 20091126
  2. ROCURONIUM BROMIDE [Suspect]
     Indication: NEUROMUSCULAR BLOCKING THERAPY
     Dosage: 50 MG;ONCE;IV, 10 MG;ONCE;IV, 10 MG;ONCE;IV, 10 MG;ONCE;IV, 10 MG;ONCE;IV, 10 MG;ONCE;IV, 10;MG;ONCE
     Route: 042
     Dates: start: 20091126
  3. ROCURONIUM BROMIDE [Suspect]
     Indication: NEUROMUSCULAR BLOCKING THERAPY
     Dosage: 50 MG;ONCE;IV, 10 MG;ONCE;IV, 10 MG;ONCE;IV, 10 MG;ONCE;IV, 10 MG;ONCE;IV, 10 MG;ONCE;IV, 10;MG;ONCE
     Route: 042
     Dates: start: 20091126
  4. ROCURONIUM BROMIDE [Suspect]
     Indication: NEUROMUSCULAR BLOCKING THERAPY
     Dosage: 50 MG;ONCE;IV, 10 MG;ONCE;IV, 10 MG;ONCE;IV, 10 MG;ONCE;IV, 10 MG;ONCE;IV, 10 MG;ONCE;IV, 10;MG;ONCE
     Route: 042
     Dates: start: 20091126
  5. ROCURONIUM BROMIDE [Suspect]
     Indication: NEUROMUSCULAR BLOCKING THERAPY
     Dosage: 50 MG;ONCE;IV, 10 MG;ONCE;IV, 10 MG;ONCE;IV, 10 MG;ONCE;IV, 10 MG;ONCE;IV, 10 MG;ONCE;IV, 10;MG;ONCE
     Route: 042
     Dates: start: 20091126
  6. ROCURONIUM BROMIDE [Suspect]
     Indication: NEUROMUSCULAR BLOCKING THERAPY
     Dosage: 50 MG;ONCE;IV, 10 MG;ONCE;IV, 10 MG;ONCE;IV, 10 MG;ONCE;IV, 10 MG;ONCE;IV, 10 MG;ONCE;IV, 10;MG;ONCE
     Route: 042
     Dates: start: 20091126
  7. ROCURONIUM BROMIDE [Suspect]
     Indication: NEUROMUSCULAR BLOCKING THERAPY
     Dosage: 50 MG;ONCE;IV, 10 MG;ONCE;IV, 10 MG;ONCE;IV, 10 MG;ONCE;IV, 10 MG;ONCE;IV, 10 MG;ONCE;IV, 10;MG;ONCE
     Route: 042
     Dates: start: 20091126
  8. ROCURONIUM BROMIDE [Suspect]
     Indication: NEUROMUSCULAR BLOCKING THERAPY
     Dosage: 50 MG;ONCE;IV, 10 MG;ONCE;IV, 10 MG;ONCE;IV, 10 MG;ONCE;IV, 10 MG;ONCE;IV, 10 MG;ONCE;IV, 10;MG;ONCE
     Route: 042
     Dates: start: 20091126
  9. ROCURONIUM BROMIDE [Suspect]
     Indication: NEUROMUSCULAR BLOCKING THERAPY
     Dosage: 50 MG;ONCE;IV, 10 MG;ONCE;IV, 10 MG;ONCE;IV, 10 MG;ONCE;IV, 10 MG;ONCE;IV, 10 MG;ONCE;IV, 10;MG;ONCE
     Route: 042
     Dates: start: 20091126
  10. BRON ACE (L-CARBOXISTEINE) [Concomitant]
  11. NARON (ACETAMINOPHEN) [Concomitant]
  12. SEDES (ETHENZAMIDE) [Concomitant]
  13. SEVOFLURANE [Concomitant]
  14. ISOZOL [Concomitant]
  15. ULTIVA [Concomitant]
  16. EPHEDRIN [Concomitant]
  17. XYLOCAINE [Concomitant]
  18. ATROPINE [Concomitant]

REACTIONS (5)
  - CARDIAC ARREST [None]
  - PROCEDURAL COMPLICATION [None]
  - THERAPEUTIC AGENT TOXICITY [None]
  - VENTRICULAR FIBRILLATION [None]
  - VENTRICULAR TACHYCARDIA [None]
